FAERS Safety Report 10050170 (Version 2)
Quarter: 2014Q2

REPORT INFORMATION
  Report Type: Report from Study
  Country: US (occurrence: US)
  Receive Date: 20140401
  Receipt Date: 20140401
  Transmission Date: 20141212
  Serious: Yes (Hospitalization, Other)
  Sender: FDA-Public Use
  Company Number: US-ABBVIE-10P-163-0637793-00

PATIENT
  Age: 25 Year
  Sex: Female
  Weight: 61.29 kg

DRUGS (29)
  1. HUMIRA 40 MG/0.8 ML PEN [Suspect]
     Indication: CROHN^S DISEASE
     Dates: start: 200811, end: 200902
  2. HUMIRA 40 MG/0.8 ML PEN [Suspect]
     Route: 058
     Dates: start: 200902
  3. VALIUM [Suspect]
     Indication: CROHN^S DISEASE
     Route: 048
     Dates: start: 20090706, end: 20100321
  4. VALIUM [Suspect]
     Indication: ANXIETY
  5. LORTAB [Concomitant]
     Indication: CROHN^S DISEASE
     Route: 048
     Dates: start: 20090706, end: 20100321
  6. PROTONIX [Concomitant]
     Indication: GASTRIC DISORDER
  7. PREDNISONE [Concomitant]
     Indication: CROHN^S DISEASE
     Route: 048
  8. PHENERGAN [Concomitant]
     Indication: NAUSEA
     Dates: start: 20090706, end: 20100321
  9. KEFLEX [Concomitant]
     Indication: PRODUCT USED FOR UNKNOWN INDICATION
     Route: 048
     Dates: start: 20090706, end: 20100321
  10. FOLIC ACID [Concomitant]
     Indication: PRODUCT USED FOR UNKNOWN INDICATION
     Route: 048
     Dates: start: 20090714, end: 20090716
  11. CAFFEINE [Concomitant]
     Indication: PRODUCT USED FOR UNKNOWN INDICATION
     Dosage: 1 SERVINGS - DR PEPPER SODA
     Route: 048
     Dates: start: 20090706, end: 20091210
  12. TEA [Concomitant]
     Indication: PRODUCT USED FOR UNKNOWN INDICATION
     Dosage: 1 SERVING
     Route: 048
     Dates: start: 20090706, end: 20091115
  13. KEFLEX [Concomitant]
     Indication: STAPHYLOCOCCAL INFECTION
     Route: 048
     Dates: start: 20090706, end: 20090828
  14. FLAGYL [Concomitant]
     Indication: STAPHYLOCOCCAL INFECTION
     Route: 048
     Dates: start: 20090706, end: 20090828
  15. BACTRIM DS [Concomitant]
     Indication: STAPHYLOCOCCAL INFECTION
     Route: 048
     Dates: start: 20090706, end: 20090828
  16. NYSTATIN [Concomitant]
     Indication: FUNGAL INFECTION
     Route: 048
     Dates: start: 20090704, end: 20091020
  17. NYSTATIN [Concomitant]
     Route: 048
     Dates: start: 20091021, end: 20091104
  18. FIORICET [Concomitant]
     Indication: MIGRAINE
     Route: 048
     Dates: start: 20090706, end: 20091203
  19. ANTIBIOTICS [Concomitant]
     Indication: GASTROINTESTINAL INFECTION
     Route: 042
     Dates: start: 20090828, end: 20090828
  20. FLU VACCINE NOS [Concomitant]
     Indication: INFLUENZA IMMUNISATION
     Dosage: 1 SHOT
     Route: 050
     Dates: start: 20091008, end: 20091008
  21. TYLENOL HEADACHE PLUS (EXTRA) [Concomitant]
     Indication: HEADACHE
     Dosage: 1.5 PER WEEK
     Route: 048
     Dates: start: 20090706, end: 20100228
  22. BENADRYL [Concomitant]
     Indication: NASOPHARYNGITIS
     Route: 048
     Dates: start: 20091115, end: 20091125
  23. BENADRYL [Concomitant]
     Dosage: UNKNOWN FREQUENCY
     Route: 048
     Dates: start: 20100213, end: 20100217
  24. SUDAFED [Concomitant]
     Indication: NASOPHARYNGITIS
     Route: 048
     Dates: start: 20091115, end: 20091125
  25. TYLENOL DAY COLD [Concomitant]
     Indication: PRODUCT USED FOR UNKNOWN INDICATION
     Route: 048
     Dates: start: 20091115, end: 20091125
  26. TYLENOL [Concomitant]
     Indication: PRODUCT USED FOR UNKNOWN INDICATION
     Dosage: 2 TABS 3.4 DAY
     Dates: start: 20100213, end: 20100217
  27. ROBITUSSIN [Concomitant]
     Indication: COUGH
     Route: 048
     Dates: start: 20100213, end: 20100217
  28. ROBITUSSIN [Concomitant]
     Indication: NASOPHARYNGITIS
  29. INDOCIN [Concomitant]
     Indication: PRODUCT USED FOR UNKNOWN INDICATION
     Route: 042
     Dates: start: 20100310, end: 20100321

REACTIONS (18)
  - Fistula [Recovering/Resolving]
  - Cough [Recovered/Resolved]
  - Malaise [Recovered/Resolved]
  - Premature labour [Recovered/Resolved]
  - Placenta praevia [Recovered/Resolved]
  - Premature labour [Recovered/Resolved]
  - Staphylococcal infection [Unknown]
  - Premature separation of placenta [Unknown]
  - Pyrexia [Unknown]
  - Gastrointestinal infection [Unknown]
  - Palpitations [Recovered/Resolved]
  - Road traffic accident [Unknown]
  - Road traffic accident [Unknown]
  - Fall [Unknown]
  - Nasopharyngitis [Unknown]
  - Hyperthermia [Recovered/Resolved]
  - Respiratory tract infection [Recovered/Resolved]
  - Respiratory tract infection [Unknown]
